FAERS Safety Report 14968175 (Version 1)
Quarter: 2018Q2

REPORT INFORMATION
  Report Type: Report from Study
  Country: US (occurrence: US)
  Receive Date: 20180604
  Receipt Date: 20180604
  Transmission Date: 20180711
  Serious: Yes (Other)
  Sender: FDA-Public Use
  Company Number: US-GILEAD-2018-0342041

PATIENT
  Age: 71 Year
  Sex: Female

DRUGS (16)
  1. RESTASIS [Concomitant]
     Active Substance: CYCLOSPORINE
  2. AMBRISENTAN [Suspect]
     Active Substance: AMBRISENTAN
     Indication: PULMONARY HYPERTENSION
     Dosage: 10 MG, QD
     Route: 065
  3. SILDENAFIL. [Suspect]
     Active Substance: SILDENAFIL
     Indication: PRODUCT USED FOR UNKNOWN INDICATION
     Dosage: UNK
     Route: 065
     Dates: start: 201804
  4. OXYCODONE [Concomitant]
     Active Substance: OXYCODONE
  5. CITALOPRAM HYDROBROMIDE. [Concomitant]
     Active Substance: CITALOPRAM HYDROBROMIDE
  6. LOSARTAN POTASSIUM. [Concomitant]
     Active Substance: LOSARTAN POTASSIUM
  7. ATENOLOL. [Concomitant]
     Active Substance: ATENOLOL
  8. LEVOTHYROXINE SODIUM. [Concomitant]
     Active Substance: LEVOTHYROXINE SODIUM
  9. CLARITIN [Concomitant]
     Active Substance: LORATADINE
  10. PREDNISONE. [Concomitant]
     Active Substance: PREDNISONE
  11. AMITRIPTYLINE HCL [Concomitant]
     Active Substance: AMITRIPTYLINE
  12. XARELTO [Concomitant]
     Active Substance: RIVAROXABAN
  13. BACLOFEN. [Concomitant]
     Active Substance: BACLOFEN
  14. CRESTOR [Concomitant]
     Active Substance: ROSUVASTATIN CALCIUM
  15. PANTOPRAZOLE SODIUM. [Concomitant]
     Active Substance: PANTOPRAZOLE SODIUM
  16. KLONOPIN [Concomitant]
     Active Substance: CLONAZEPAM

REACTIONS (1)
  - Pneumonia [Recovered/Resolved]
